FAERS Safety Report 6734404-9 (Version None)
Quarter: 2010Q2

REPORT INFORMATION
  Report Type: 
  Country: None (occurrence: None)
  Receive Date: 20100520
  Receipt Date: 20090713
  Transmission Date: 20101027
  Serious: No
  Sender: FDA-Public Use
  Company Number: CHPA2009CA15292

PATIENT
  Sex: Male

DRUGS (2)
  1. OTRIVIN [Suspect]
     Dosage: UNK, UNK
     Route: 045
     Dates: start: 20090401, end: 20090401
  2. OTRIVIN [Suspect]
     Dosage: 4 TIMES IN AN HOUR, UP TO 12 TIMES A DAY
     Route: 045
     Dates: start: 20090101, end: 20090101

REACTIONS (2)
  - ANOSMIA [None]
  - OVERDOSE [None]
